FAERS Safety Report 24048173 (Version 1)
Quarter: 2024Q3

REPORT INFORMATION
  Report Type: Spontaneous
  Country: US (occurrence: US)
  Receive Date: 20240703
  Receipt Date: 20240703
  Transmission Date: 20241017
  Serious: No
  Sender: BAUSCH AND LOMB
  Company Number: US-BAUSCHBL-2024BNL029318

PATIENT
  Age: 35 Year
  Sex: Female

DRUGS (2)
  1. LUMIFY [Suspect]
     Active Substance: BRIMONIDINE TARTRATE
     Indication: Ocular hyperaemia
     Dosage: 1-2 TIME AS PER NEED
     Route: 047
  2. LUMIFY [Suspect]
     Active Substance: BRIMONIDINE TARTRATE
     Dosage: 1-2 TIME AS PER NEED
     Route: 047

REACTIONS (4)
  - Product residue present [Unknown]
  - Ocular hyperaemia [Unknown]
  - Condition aggravated [Unknown]
  - Drug ineffective [Unknown]
